FAERS Safety Report 7359080-6 (Version None)
Quarter: 2011Q1

REPORT INFORMATION
  Report Type: 
  Country: None (occurrence: None)
  Receive Date: 20110317
  Receipt Date: 20110307
  Transmission Date: 20110831
  Serious: Yes (Other)
  Sender: FDA-Public Use
  Company Number: JP-BAYER-2011-017547

PATIENT
  Age: 26 Year
  Sex: Female

DRUGS (5)
  1. AMOXAN [Interacting]
     Indication: DEPRESSION
     Dosage: DAILY DOSE 25 MG
     Route: 048
     Dates: end: 20110219
  2. YAZ [Suspect]
     Indication: DYSMENORRHOEA
     Dosage: 1 DF, ONCE
     Route: 048
     Dates: start: 20110213, end: 20110219
  3. CLOTIAZEPAM [Interacting]
     Indication: DEPRESSION
     Dosage: DAILY DOSE 5 MG
     Route: 048
  4. DIAZEPAM [Interacting]
     Indication: DEPRESSION
     Dosage: DAILY DOSE 5 MG
     Route: 048
  5. SEPAZON [Interacting]
     Indication: DEPRESSION
     Dosage: DAILY DOSE 2 MG
     Route: 048

REACTIONS (1)
  - SUICIDE ATTEMPT [None]
